FAERS Safety Report 8267195-3 (Version None)
Quarter: 2012Q2

REPORT INFORMATION
  Report Type: 
  Country: None (occurrence: None)
  Receive Date: 20120409
  Receipt Date: 20120330
  Transmission Date: 20120825
  Serious: Yes (Other)
  Sender: FDA-Public Use
  Company Number: US-PFIZER INC-2012070146

PATIENT
  Sex: Male
  Weight: 102.04 kg

DRUGS (4)
  1. XANAX [Concomitant]
     Dosage: 1 MG, 1X/DAY
  2. EFFEXOR [Suspect]
     Indication: DEPRESSION
     Dosage: UNK, 1X/DAY
     Route: 048
     Dates: start: 20070101, end: 20110101
  3. CELEXA [Concomitant]
     Dosage: UNK
  4. WELLBUTRIN [Concomitant]
     Dosage: UNK

REACTIONS (2)
  - SENSORY DISTURBANCE [None]
  - PARAESTHESIA [None]
